FAERS Safety Report 18385343 (Version 1)
Quarter: 2020Q4

REPORT INFORMATION
  Report Type: Spontaneous
  Country: FR (occurrence: FR)
  Receive Date: 20201015
  Receipt Date: 20201015
  Transmission Date: 20210114
  Serious: Yes (Other)
  Sender: FDA-Public Use
  Company Number: FR-ACCORD-205171

PATIENT
  Age: 68 Year
  Sex: Male
  Weight: 120 kg

DRUGS (10)
  1. EXFORGE [Concomitant]
     Active Substance: AMLODIPINE BESYLATE\VALSARTAN
  2. PRAVASTATIN. [Suspect]
     Active Substance: PRAVASTATIN
     Indication: PROPHYLAXIS
     Route: 048
     Dates: start: 2010, end: 20200920
  3. ALLOPURINOL. [Concomitant]
     Active Substance: ALLOPURINOL
  4. TRESIBA [Concomitant]
     Active Substance: INSULIN DEGLUDEC
  5. KARDEGIC [Concomitant]
     Active Substance: ASPIRIN DL-LYSINE
  6. DIFFU K [Concomitant]
     Active Substance: POTASSIUM CHLORIDE
  7. VICTOZA [Concomitant]
     Active Substance: LIRAGLUTIDE
  8. COUMADINE [Concomitant]
     Active Substance: WARFARIN SODIUM
  9. BISOPROLOL [Concomitant]
     Active Substance: BISOPROLOL
  10. METFORMIN [Concomitant]
     Active Substance: METFORMIN HYDROCHLORIDE

REACTIONS (1)
  - Hepatitis cholestatic [Recovering/Resolving]

NARRATIVE: CASE EVENT DATE: 20200908
